FAERS Safety Report 4496660-X (Version None)
Quarter: 2004Q4

REPORT INFORMATION
  Report Type: 
  Country: None (occurrence: None)
  Receive Date: 20041108
  Receipt Date: 20041108
  Transmission Date: 20050328
  Serious: Yes (Hospitalization)
  Sender: FDA-Public Use
  Company Number: None

PATIENT
  Age: 78 Year
  Sex: Male
  Weight: 46 kg

DRUGS (1)
  1. CEFAZOLIN [Suspect]
     Indication: URINARY TRACT INFECTION
     Dosage: 1 GM Q 24 HOURS IV
     Route: 042
     Dates: start: 20040712, end: 20040720

REACTIONS (1)
  - DIARRHOEA [None]
